FAERS Safety Report 24565273 (Version 2)
Quarter: 2024Q4

REPORT INFORMATION
  Report Type: Report from Study
  Country: NL (occurrence: NL)
  Receive Date: 20241030
  Receipt Date: 20241125
  Transmission Date: 20250115
  Serious: Yes (Other)
  Sender: ABBVIE
  Company Number: NL-ABBVIE-5897909

PATIENT
  Age: 71 Year
  Sex: Female

DRUGS (12)
  1. CARBIDOPA\LEVODOPA [Suspect]
     Active Substance: CARBIDOPA\LEVODOPA
     Indication: Parkinson^s disease
     Dosage: LD: 0.90ML, BI RATE: 0.29 ML/H, LI RATE: 0.15 ML/H, ED: 0.10 ML, REMAINS AT 24 HOURS
     Route: 058
     Dates: start: 20240826, end: 20240827
  2. CARBIDOPA\LEVODOPA [Suspect]
     Active Substance: CARBIDOPA\LEVODOPA
     Dosage: BIR: 0.32 ML/H, LIR: 0.18 ML/H, ED: 0.20 ML; REMAINS AT 24 HOURS
     Route: 058
     Dates: start: 20240827, end: 20240828
  3. CARBIDOPA\LEVODOPA [Suspect]
     Active Substance: CARBIDOPA\LEVODOPA
     Dosage: BIR: 0.35 ML/H, LIR: 0.21 ML/H, ED: 0.20 ML; REMAINS AT 24 HOURS
     Route: 058
     Dates: start: 20240828, end: 20240829
  4. CARBIDOPA\LEVODOPA [Suspect]
     Active Substance: CARBIDOPA\LEVODOPA
     Dosage: BIR: 0.38 ML/H, LIR: 0.23 ML/H, ED: 0.25 ML, REMAINS AT 24 HOURS
     Route: 058
     Dates: start: 20240829, end: 20240925
  5. CARBIDOPA\LEVODOPA [Suspect]
     Active Substance: CARBIDOPA\LEVODOPA
     Dosage: LD: 0.50ML, HI RATE: 0.41 ML/H, BI RATE: 0.41 ML/H, LI RATE: 0.24 ML/H, ED: 0.25 ML,  REMAINS AT ...
     Route: 058
     Dates: start: 20240925, end: 20241010
  6. CARBIDOPA\LEVODOPA [Suspect]
     Active Substance: CARBIDOPA\LEVODOPA
     Dosage: LI RATE: 0.30 ML/H, DURATION TEXT: REMAINS AT 24 HOURS
     Route: 058
     Dates: start: 20241021
  7. CARBIDOPA\LEVODOPA [Suspect]
     Active Substance: CARBIDOPA\LEVODOPA
     Dosage: HI RATE: 0.44 ML/H, BI RATE: 0.44 ML/H, LI RATE: 0.27 ML/H, ED: 0.25 ML, REMAINS AT 24 HOURS
     Route: 058
     Dates: start: 20241010, end: 20241021
  8. Pramipexol retard [Concomitant]
     Indication: Parkinson^s disease
     Dosage: 1 TABLET 11PM
  9. ATORVASTATIN [Concomitant]
     Active Substance: ATORVASTATIN
     Indication: Blood cholesterol
     Dosage: 1 TABLET 11PM
  10. RIVOTRIL [Concomitant]
     Active Substance: CLONAZEPAM
     Indication: Restlessness
     Dosage: 0.5 MILLIGRAM, HALF A TABLET EVERY DAY AT 10PM
  11. PANTOPRAZOLE SODIUM [Concomitant]
     Active Substance: PANTOPRAZOLE SODIUM
     Indication: Gastrointestinal disorder prophylaxis
  12. PREDNISOLONE [Concomitant]
     Active Substance: PREDNISOLONE
     Indication: Product used for unknown indication
     Dosage: 2 WEEKS DAILY

REACTIONS (34)
  - Depressed level of consciousness [Unknown]
  - Joint range of motion decreased [Not Recovered/Not Resolved]
  - Parkinsonian gait [Not Recovered/Not Resolved]
  - Infusion site nodule [Not Recovered/Not Resolved]
  - Catheter site related reaction [Not Recovered/Not Resolved]
  - Drug ineffective [Not Recovered/Not Resolved]
  - Catheter site related reaction [Not Recovered/Not Resolved]
  - Device issue [Not Recovered/Not Resolved]
  - Loss of personal independence in daily activities [Not Recovered/Not Resolved]
  - Dyskinesia [Not Recovered/Not Resolved]
  - Infusion site haematoma [Not Recovered/Not Resolved]
  - Injury corneal [Not Recovered/Not Resolved]
  - Rash papular [Not Recovered/Not Resolved]
  - Catheter site discharge [Not Recovered/Not Resolved]
  - Muscle rigidity [Not Recovered/Not Resolved]
  - Urinary retention [Not Recovered/Not Resolved]
  - Posture abnormal [Not Recovered/Not Resolved]
  - Therapeutic product effect delayed [Recovered/Resolved]
  - Gait disturbance [Not Recovered/Not Resolved]
  - Reduced facial expression [Not Recovered/Not Resolved]
  - Limb discomfort [Not Recovered/Not Resolved]
  - Freezing phenomenon [Not Recovered/Not Resolved]
  - Sleep disorder [Recovered/Resolved]
  - Malaise [Not Recovered/Not Resolved]
  - Off label use [Not Recovered/Not Resolved]
  - On and off phenomenon [Not Recovered/Not Resolved]
  - Hallucination [Not Recovered/Not Resolved]
  - Infusion site pain [Not Recovered/Not Resolved]
  - Infusion site pain [Not Recovered/Not Resolved]
  - Therapeutic product effect variable [Not Recovered/Not Resolved]
  - Mobility decreased [Not Recovered/Not Resolved]
  - Dry eye [Not Recovered/Not Resolved]
  - Infusion site induration [Unknown]
  - Infusion site reaction [Not Recovered/Not Resolved]

NARRATIVE: CASE EVENT DATE: 20240101
